FAERS Safety Report 9315392 (Version 1)
Quarter: 2013Q2

REPORT INFORMATION
  Report Type: Spontaneous
  Country: DE (occurrence: DE)
  Receive Date: 20130529
  Receipt Date: 20130529
  Transmission Date: 20140414
  Serious: Yes (Life-Threatening, Hospitalization, Disabling)
  Sender: FDA-Public Use
  Company Number: DE-ABBOTT-13X-062-1096115-00

PATIENT
  Age: 51 Year
  Sex: Male

DRUGS (1)
  1. ERGENYL CHRONO [Suspect]
     Indication: BIPOLAR DISORDER
     Dosage: EXTENDED RELEASE TABLET
     Route: 048
     Dates: start: 20101001, end: 20101031

REACTIONS (2)
  - Plasma cell myeloma [Recovered/Resolved with Sequelae]
  - Visual acuity reduced [Recovered/Resolved with Sequelae]
